FAERS Safety Report 4588060-9 (Version None)
Quarter: 2005Q1

REPORT INFORMATION
  Report Type: 
  Country: None (occurrence: None)
  Receive Date: 20050216
  Receipt Date: 20050128
  Transmission Date: 20050727
  Serious: Yes (Hospitalization)
  Sender: FDA-Public Use
  Company Number: EWC040840349

PATIENT
  Age: 69 Year
  Sex: Female

DRUGS (10)
  1. FORTEO [Suspect]
     Dosage: 20 UG/1
     Dates: start: 20040426
  2. MAGNYL [Concomitant]
  3. NORVASC [Concomitant]
  4. IMDUR [Concomitant]
  5. ZOCOR [Concomitant]
  6. PACISYN (NITRAZEPAM) [Concomitant]
  7. UNIKALK [Concomitant]
  8. PREDNISOLONE [Concomitant]
  9. SERETIDE [Concomitant]
  10. NITROMEX (GLYCERYL TRINITRATE) [Concomitant]

REACTIONS (1)
  - ANGINA PECTORIS [None]
